FAERS Safety Report 8416214-X (Version None)
Quarter: 2012Q2

REPORT INFORMATION
  Report Type: 
  Country: None (occurrence: None)
  Receive Date: 20120606
  Receipt Date: 20120604
  Transmission Date: 20120825
  Serious: Yes (Death)
  Sender: FDA-Public Use
  Company Number: JP-PFIZER INC-2012066545

PATIENT
  Age: 64 Year
  Sex: Male
  Weight: 45.3 kg

DRUGS (13)
  1. SUNITINIB MALATE [Suspect]
     Dosage: 25 MG, 1X/DAY
     Route: 048
     Dates: start: 20090821, end: 20100115
  2. PROCHLORPERAZINE [Concomitant]
     Dosage: 5 MG, 2X/DAY
     Route: 048
  3. VITAMIN B12 [Concomitant]
     Dosage: 500 UG, 3X/DAY
     Route: 048
  4. GABAPENTIN [Concomitant]
     Dosage: 200 MG, 3X/DAY
     Route: 048
  5. RABEPRAZOLE SODIUM [Concomitant]
     Dosage: 20 MG, 1X/DAY
     Route: 048
     Dates: start: 20100213
  6. MUCOSTA [Concomitant]
     Dosage: 100 MG, 3X/DAY
     Route: 048
     Dates: start: 20100213
  7. SUNITINIB MALATE [Suspect]
     Dosage: 37.5 MG, 1X/DAY
     Route: 048
     Dates: start: 20100319, end: 20100330
  8. SUNITINIB MALATE [Suspect]
     Dosage: 37.5 MG, 1X/DAY
     Route: 048
     Dates: start: 20100416, end: 20100507
  9. MAGNESIUM OXIDE [Concomitant]
     Dosage: 250 MG, 3X/DAY
     Route: 048
  10. SUNITINIB MALATE [Suspect]
     Indication: METASTATIC RENAL CELL CARCINOMA
     Dosage: 50 MG, 1X/DAY
     Route: 048
     Dates: start: 20090807, end: 20090820
  11. NORVASC [Concomitant]
     Dosage: 5 MG, 1X/DAY
     Route: 048
  12. SUNITINIB MALATE [Suspect]
     Dosage: 37.5 MG, 1X/DAY
     Route: 048
     Dates: start: 20100205, end: 20100219
  13. ADONA [Concomitant]
     Dosage: 30 MG, 3X/DAY
     Route: 048
     Dates: start: 20100213

REACTIONS (2)
  - DISEASE PROGRESSION [None]
  - RENAL CELL CARCINOMA [None]
